FAERS Safety Report 12089178 (Version 1)
Quarter: 2016Q1

REPORT INFORMATION
  Report Type: Spontaneous
  Country: HU (occurrence: None)
  Receive Date: 20160217
  Receipt Date: 20160217
  Transmission Date: 20160526
  Serious: Yes (Life-Threatening, Disabling)
  Sender: FDA-Public Use
  Company Number: None

PATIENT
  Age: 29 Year
  Sex: Female
  Weight: 60 kg

DRUGS (2)
  1. OMEGA 3 [Concomitant]
     Active Substance: OMEGA-3 FATTY ACIDS
  2. ESCITALOPRAM 10 MG RICHTER GEDEON NYRT. [Suspect]
     Active Substance: ESCITALOPRAM OXALATE
     Indication: DEPRESSED MOOD
     Route: 048
     Dates: start: 20150317, end: 20150407

REACTIONS (30)
  - Genital paraesthesia [None]
  - Loss of libido [None]
  - Genital hypoaesthesia [None]
  - Tremor [None]
  - Gastrointestinal disorder [None]
  - Asthenia [None]
  - Depression [None]
  - Anhedonia [None]
  - Disturbance in attention [None]
  - Feeling abnormal [None]
  - Decreased appetite [None]
  - Menstruation irregular [None]
  - Alopecia [None]
  - Loss of employment [None]
  - Sexual dysfunction [None]
  - Fatigue [None]
  - Peripheral coldness [None]
  - Diffuse alopecia [None]
  - Palpitations [None]
  - Hypotension [None]
  - Emotional disorder [None]
  - Insomnia [None]
  - Cognitive disorder [None]
  - Weight decreased [None]
  - Influenza like illness [None]
  - Sleep disorder [None]
  - Memory impairment [None]
  - Apathy [None]
  - Head discomfort [None]
  - Drug withdrawal syndrome [None]

NARRATIVE: CASE EVENT DATE: 20150317
